FAERS Safety Report 4732170-X (Version None)
Quarter: 2005Q3

REPORT INFORMATION
  Report Type: 
  Country: None (occurrence: None)
  Receive Date: 20050721
  Receipt Date: 20050520
  Transmission Date: 20060218
  Serious: No
  Sender: FDA-Public Use
  Company Number: 2005SP001214

PATIENT
  Age: 60 Year
  Sex: Male
  Weight: 106.5953 kg

DRUGS (2)
  1. LUNESTA [Suspect]
     Dosage: 2-3 MG; HS;ORAL
     Route: 048
     Dates: start: 20050518, end: 20050518
  2. LUNESTA [Suspect]
     Dosage: 2-3 MG; HS;ORAL
     Route: 048
     Dates: start: 20050519, end: 20050519

REACTIONS (2)
  - DRUG INEFFECTIVE [None]
  - INSOMNIA [None]
